FAERS Safety Report 7788112-6 (Version None)
Quarter: 2011Q3

REPORT INFORMATION
  Report Type: 
  Country: None (occurrence: None)
  Receive Date: 20110929
  Receipt Date: 20110929
  Transmission Date: 20111222
  Serious: No
  Sender: FDA-Public Use
  Company Number: None

PATIENT
  Age: 80 Year
  Sex: Female
  Weight: 50.8029 kg

DRUGS (1)
  1. RECLAST [Suspect]

REACTIONS (5)
  - HYPOAESTHESIA ORAL [None]
  - PYREXIA [None]
  - DISORIENTATION [None]
  - HYPOAESTHESIA [None]
  - MIGRAINE [None]
